FAERS Safety Report 25424245 (Version 1)
Quarter: 2025Q2

REPORT INFORMATION
  Report Type: Spontaneous
  Country: ES (occurrence: ES)
  Receive Date: 20250611
  Receipt Date: 20250611
  Transmission Date: 20250716
  Serious: Yes (Other)
  Sender: AMGEN
  Company Number: ES-AMGEN-ESPSP2025110352

PATIENT
  Age: 50 Year
  Sex: Female

DRUGS (12)
  1. ECULIZUMAB [Suspect]
     Active Substance: ECULIZUMAB
     Indication: Heart transplant
     Route: 065
  2. ECULIZUMAB [Suspect]
     Active Substance: ECULIZUMAB
     Dosage: UNK, Q2WK
     Route: 065
  3. CYCLOPHOSPHAMIDE [Concomitant]
     Active Substance: CYCLOPHOSPHAMIDE
  4. BORTEZOMIB [Concomitant]
     Active Substance: BORTEZOMIB
  5. DEXAMETHASONE [Concomitant]
     Active Substance: DEXAMETHASONE
  6. DARATUMUMAB [Concomitant]
     Active Substance: DARATUMUMAB
  7. BASILIXIMAB [Concomitant]
     Active Substance: BASILIXIMAB
  8. TACROLIMUS [Concomitant]
     Active Substance: TACROLIMUS
  9. MYCOPHENOLIC ACID [Concomitant]
     Active Substance: MYCOPHENOLIC ACID
  10. PREDNISONE [Concomitant]
     Active Substance: PREDNISONE
  11. METHYLPREDNISOLONE [Concomitant]
     Active Substance: METHYLPREDNISOLONE
  12. LAPINE T-LYMPHOCYTE IMMUNE GLOBULIN [Concomitant]
     Active Substance: LAPINE T-LYMPHOCYTE IMMUNE GLOBULIN

REACTIONS (6)
  - Transplant rejection [Unknown]
  - Transplant rejection [Recovered/Resolved]
  - Complications of transplanted heart [Unknown]
  - Immune agglutinins [Unknown]
  - Drug effective for unapproved indication [Unknown]
  - Off label use [Unknown]
